FAERS Safety Report 8582062-3 (Version None)
Quarter: 2012Q3

REPORT INFORMATION
  Report Type: 
  Country: None (occurrence: None)
  Receive Date: 20120809
  Receipt Date: 20120806
  Transmission Date: 20120928
  Serious: Yes (Other)
  Sender: FDA-Public Use
  Company Number: BR-PFIZER INC-2012190877

PATIENT
  Age: 50 Year
  Sex: Female

DRUGS (3)
  1. VARENICLINE [Suspect]
     Dosage: TWO TABLETS DAILY
     Route: 048
     Dates: start: 20120701, end: 20120101
  2. VARENICLINE [Suspect]
     Indication: SMOKING CESSATION THERAPY
     Dosage: UNK
     Route: 048
     Dates: start: 20120707, end: 20120701
  3. CHLORTHALIDONE [Concomitant]
     Indication: HYPERTENSION
     Dosage: 12.5 MG, UNK
     Dates: start: 20040101

REACTIONS (5)
  - ANXIETY [None]
  - FEELING ABNORMAL [None]
  - PRESYNCOPE [None]
  - COLD SWEAT [None]
  - HYPERTENSION [None]
